FAERS Safety Report 13589674 (Version 1)
Quarter: 2017Q2

REPORT INFORMATION
  Report Type: Report from Study
  Country: ES (occurrence: ES)
  Receive Date: 20170530
  Receipt Date: 20170530
  Transmission Date: 20170830
  Serious: Yes (Other)
  Sender: FDA-Public Use
  Company Number: PHHY2017ES078370

PATIENT
  Age: 9 Year
  Sex: Female
  Weight: 34 kg

DRUGS (1)
  1. TRAMETINIB [Suspect]
     Active Substance: TRAMETINIB
     Indication: NEUROFIBROMA
     Dosage: UNK
     Route: 048
     Dates: start: 20160408

REACTIONS (4)
  - Fracture [Recovering/Resolving]
  - Dermatitis acneiform [Recovering/Resolving]
  - Seizure [Not Recovered/Not Resolved]
  - Dry skin [Not Recovered/Not Resolved]

NARRATIVE: CASE EVENT DATE: 20160513
